FAERS Safety Report 7104421-8 (Version None)
Quarter: 2010Q4

REPORT INFORMATION
  Report Type: 
  Country: None (occurrence: None)
  Receive Date: 20101116
  Receipt Date: 20100105
  Transmission Date: 20110411
  Serious: Yes (Hospitalization, Other)
  Sender: FDA-Public Use
  Company Number: US-ASTRAZENECA-2009SE18404

PATIENT
  Age: 18496 Day
  Sex: Female
  Weight: 97.5 kg

DRUGS (17)
  1. SEROQUEL [Suspect]
     Indication: DEPRESSION
     Route: 048
     Dates: start: 20000101
  2. SEROQUEL [Suspect]
     Indication: SLEEP DISORDER
     Route: 048
     Dates: start: 20000101
  3. SEROQUEL [Suspect]
     Dosage: 100 MG TO 300 MG
     Route: 048
     Dates: start: 20011001
  4. SEROQUEL [Suspect]
     Dosage: 100 MG TO 300 MG
     Route: 048
     Dates: start: 20011001
  5. ABILIFY [Concomitant]
     Dosage: 10-15 MG AT NIGHT
     Dates: start: 20051017
  6. CLOZARIL [Concomitant]
  7. THORAZINE [Concomitant]
  8. PAXIL [Concomitant]
     Dates: start: 20030101
  9. LITHIUM CARBONATE [Concomitant]
     Dates: start: 20030101
  10. KLONOPIN [Concomitant]
     Dates: start: 20030101
  11. HYDROCODONE BITARTRATE + ACETAMINOPHEN [Concomitant]
     Dosage: 7.5-500 MG
     Dates: start: 20030101
  12. ZYPREXA [Concomitant]
     Dosage: 5  MG AM AND 7.5 HS
     Dates: start: 20030101
  13. PREMARIN [Concomitant]
     Dates: start: 20030101
  14. ACIPHEX [Concomitant]
     Dates: start: 20030101
  15. HYOSCYAMINE [Concomitant]
     Dates: start: 20030101
  16. NAPROXEN [Concomitant]
     Dates: start: 20030101
  17. SYNTHROID [Concomitant]
     Dates: start: 20030101

REACTIONS (4)
  - DIABETES MELLITUS [None]
  - GALLBLADDER DISORDER [None]
  - PANCREATITIS [None]
  - TYPE 2 DIABETES MELLITUS [None]
